FAERS Safety Report 18047644 (Version 1)
Quarter: 2020Q3

REPORT INFORMATION
  Report Type: Other
  Country: FR (occurrence: FR)
  Receive Date: 20200721
  Receipt Date: 20200721
  Transmission Date: 20201103
  Serious: Yes (Other)
  Sender: FDA-Public Use
  Company Number: FR-CADILA HEALTHCARE LIMITED-FR-ZYDUS-053671

PATIENT

DRUGS (8)
  1. LEVOTHYROX [Concomitant]
     Active Substance: LEVOTHYROXINE
     Indication: HYPOTHYROIDISM
     Dosage: 1 DOSAGE FORM
     Route: 048
  2. COLCHICINE. [Suspect]
     Active Substance: COLCHICINE
     Indication: URTICARIA
     Dosage: 1 MILLIGRAM, QD
     Route: 048
     Dates: start: 20191004, end: 20200423
  3. SOTALOL. [Concomitant]
     Active Substance: SOTALOL
     Indication: HYPERTENSION
     Dosage: 80 MILLIGRAM
     Route: 048
  4. ESOMEPRAZOLE. [Suspect]
     Active Substance: ESOMEPRAZOLE MAGNESIUM
     Indication: PRODUCT USED FOR UNKNOWN INDICATION
     Dosage: 20 MILLIGRAM, QD
     Route: 048
     Dates: end: 20200423
  5. KARDEGIC [Concomitant]
     Active Substance: ASPIRIN DL-LYSINE
     Indication: CARDIOVASCULAR EVENT PROPHYLAXIS
     Dosage: 1 DOSAGE FORM
     Route: 048
  6. CETIRIZINE [Concomitant]
     Active Substance: CETIRIZINE HYDROCHLORIDE
     Indication: URTICARIA
     Dosage: 3 DOSAGE FORM
     Route: 048
  7. LERCANIDIPINE [Suspect]
     Active Substance: LERCANIDIPINE
     Indication: HYPERTENSION
     Dosage: 10 MILLIGRAM, QD
     Route: 048
     Dates: end: 20200423
  8. KEYTRUDA [Suspect]
     Active Substance: PEMBROLIZUMAB
     Indication: SQUAMOUS CELL CARCINOMA OF LUNG
     Dosage: 200 MILLIGRAM, QD
     Route: 042
     Dates: start: 20200320, end: 20200320

REACTIONS (2)
  - Cholestasis [Recovered/Resolved]
  - Hepatocellular injury [Recovered/Resolved]

NARRATIVE: CASE EVENT DATE: 20200407
